FAERS Safety Report 9743728 (Version 2)
Quarter: 2013Q4

REPORT INFORMATION
  Report Type: Spontaneous
  Country: US (occurrence: US)
  Receive Date: 20131210
  Receipt Date: 20131212
  Transmission Date: 20140711
  Serious: Yes (Other)
  Sender: FDA-Public Use
  Company Number: US-TEVA-382543USA

PATIENT
  Age: 25 Year
  Sex: Female
  Weight: 54.93 kg

DRUGS (1)
  1. PARAGARD 380A [Suspect]
     Indication: CONTRACEPTION
     Route: 015
     Dates: start: 20130121, end: 20130123

REACTIONS (1)
  - Device dislocation [Recovered/Resolved]
